FAERS Safety Report 14060690 (Version 1)
Quarter: 2017Q4

REPORT INFORMATION
  Report Type: Spontaneous
  Country: FR (occurrence: FR)
  Receive Date: 20171007
  Receipt Date: 20171007
  Transmission Date: 20180321
  Serious: Yes (Hospitalization, Other)
  Sender: FDA-Public Use
  Company Number: FR-AUROBINDO-AUR-APL-2014-08585

PATIENT
  Sex: Female

DRUGS (1)
  1. PARACETAMOL [Suspect]
     Active Substance: ACETAMINOPHEN
     Indication: PRODUCT USED FOR UNKNOWN INDICATION

REACTIONS (9)
  - Blood lactic acid increased [Recovered/Resolved]
  - Intentional overdose [Unknown]
  - Colon injury [Unknown]
  - Haematoma [Recovered/Resolved]
  - Musculoskeletal stiffness [Recovered/Resolved]
  - Multiple organ dysfunction syndrome [Recovered/Resolved]
  - Blood creatine phosphokinase increased [Recovered/Resolved]
  - Liver injury [Unknown]
  - Ischaemia [Recovered/Resolved]
